FAERS Safety Report 7054966-4 (Version None)
Quarter: 2010Q4

REPORT INFORMATION
  Report Type: 
  Country: None (occurrence: None)
  Receive Date: 20101021
  Receipt Date: 20101014
  Transmission Date: 20110411
  Serious: Yes (Death, Hospitalization, Other)
  Sender: FDA-Public Use
  Company Number: FR-ELI_LILLY_AND_COMPANY-FR201010003010

PATIENT
  Sex: Female

DRUGS (10)
  1. ALIMTA [Suspect]
     Indication: METASTATIC BRONCHIAL CARCINOMA
     Dosage: 535 MG, INFUSION
     Route: 042
  2. SERESTA [Concomitant]
     Dosage: 10 MG, 3/D
  3. IXEL [Concomitant]
     Dosage: DAILY (1/D)
  4. SPIRONOLACTONE [Concomitant]
     Dosage: 75 MG, DAILY (1/D)
  5. PROPRANOLOL [Concomitant]
     Dosage: 40 MG, DAILY (1/D)
  6. SKENAN [Concomitant]
     Dosage: UNK, 2/D
  7. OMEPRAZOLE [Concomitant]
     Dosage: 20 MG, DAILY (1/D)
  8. COUMADIN [Concomitant]
  9. SPECIAFOLDINE [Concomitant]
  10. VIT B12 [Concomitant]

REACTIONS (11)
  - DEEP VEIN THROMBOSIS [None]
  - DISSEMINATED INTRAVASCULAR COAGULATION [None]
  - ENCEPHALOPATHY [None]
  - EPISTAXIS [None]
  - FEBRILE BONE MARROW APLASIA [None]
  - GENERAL PHYSICAL HEALTH DETERIORATION [None]
  - HAEMODYNAMIC INSTABILITY [None]
  - LUNG DISORDER [None]
  - MULTI-ORGAN FAILURE [None]
  - RENAL FAILURE ACUTE [None]
  - RESPIRATORY DISTRESS [None]
